FAERS Safety Report 4816804-7 (Version None)
Quarter: 2005Q4

REPORT INFORMATION
  Report Type: 
  Country: None (occurrence: None)
  Receive Date: 20051028
  Receipt Date: 20051017
  Transmission Date: 20060501
  Serious: Yes (Hospitalization)
  Sender: FDA-Public Use
  Company Number: B0397893A

PATIENT
  Age: 41 Year
  Sex: Male

DRUGS (4)
  1. EPIVIR [Suspect]
     Indication: HIV INFECTION
  2. EFAVIRENZ (EFAVIRENZ) [Suspect]
     Indication: HIV INFECTION
  3. LOPINAVIR + RITONAVIR (LOPINAVIR + RITONAVIR) [Suspect]
     Indication: HIV INFECTION
  4. TENOFOVIR (TENOFOVIR) [Suspect]
     Indication: HIV INFECTION

REACTIONS (6)
  - ABDOMINAL PAIN UPPER [None]
  - ALANINE AMINOTRANSFERASE INCREASED [None]
  - ASPARTATE AMINOTRANSFERASE INCREASED [None]
  - BLOOD LACTATE DEHYDROGENASE INCREASED [None]
  - HISTOPLASMOSIS DISSEMINATED [None]
  - SPLENIC INFARCTION [None]
